FAERS Safety Report 24160202 (Version 5)
Quarter: 2024Q4

REPORT INFORMATION
  Report Type: Spontaneous
  Country: IT (occurrence: IT)
  Receive Date: 20240801
  Receipt Date: 20241228
  Transmission Date: 20250115
  Serious: Yes (Death, Life-Threatening, Hospitalization)
  Sender: ROCHE
  Company Number: None

PATIENT
  Age: 46 Year
  Sex: Male
  Weight: 74 kg

DRUGS (77)
  1. RITUXIMAB [Suspect]
     Active Substance: RITUXIMAB
     Indication: Richter^s syndrome
     Dosage: 375 MILLIGRAM/SQ.METER, C1D1, AS A PART OF R-CHOP REGIMEN ON 3-WEEK CYCLE (21 DAYS) (DAY 1), ONGOING
     Route: 042
     Dates: start: 20240415, end: 20240424
  2. RITUXIMAB [Suspect]
     Active Substance: RITUXIMAB
     Indication: Diffuse large B-cell lymphoma stage III
     Dosage: 375 MILLIGRAM/SQ.METER, C1D1, ONGOING
     Route: 050
     Dates: start: 20240430
  3. RITUXIMAB [Suspect]
     Active Substance: RITUXIMAB
     Dosage: 375 MILLIGRAM/SQ.METER, C1D1, AS A PART OF R-CHOP REGIMEN ON 3-WEEK CYCLE (21 DAYS) (DAY 1), ONGOING
     Route: 042
     Dates: start: 20240426, end: 20240519
  4. RITUXIMAB [Suspect]
     Active Substance: RITUXIMAB
     Dosage: 375 MILLIGRAM/SQ.METER, C1D1, AS A PART OF R-CHOP REGIMEN ON 3-WEEK CYCLE (21 DAYS) (DAY 1), ONGOING
     Route: 042
     Dates: start: 20240509, end: 20240519
  5. EPCORITAMAB [Suspect]
     Active Substance: EPCORITAMAB
     Indication: Richter^s syndrome
     Dosage: 0.16 MG PRIMING DOSE ON C1D1, SINGLE, 3-WEEK CYCLE (21 DAYS), WEEKLY (QW)
     Route: 058
     Dates: start: 20240502, end: 20240502
  6. EPCORITAMAB [Suspect]
     Active Substance: EPCORITAMAB
     Indication: Diffuse large B-cell lymphoma stage III
     Dosage: 0.8 MG INTERMEDIATE DOSE ON C1D8, 3-WEEK CYCLE (21 DAYS), WEEKLY (QW)
     Route: 050
     Dates: start: 20240510, end: 20240510
  7. EPCORITAMAB [Suspect]
     Active Substance: EPCORITAMAB
     Dosage: 48 MG FULL DOSE ON C1D15, 3-WEEK CYCLE (21 DAYS), WEEKLY (QW), PRIOR TO THE EVENT WORSENING CLINICAL
     Route: 058
     Dates: start: 20240517, end: 20240517
  8. HYDROCORTISONE [Suspect]
     Active Substance: HYDROCORTISONE
     Indication: Product used for unknown indication
     Dosage: SINGLE
     Route: 042
     Dates: start: 20240430, end: 20240430
  9. DOXORUBICIN [Suspect]
     Active Substance: DOXORUBICIN
     Indication: Diffuse large B-cell lymphoma stage III
     Dosage: UNK
     Route: 042
     Dates: start: 20240412, end: 20240412
  10. DOXORUBICIN [Suspect]
     Active Substance: DOXORUBICIN
     Indication: Richter^s syndrome
     Dosage: 50 MILLIGRAM/SQ.METER, C1D1, AS A PART OF R-CHOP REGIMEN ON 3-WEEK CYCLE (21 DAYS) (DAY 1), ONGOING
     Route: 042
     Dates: start: 20240430
  11. CYCLOPHOSPHAMIDE [Suspect]
     Active Substance: CYCLOPHOSPHAMIDE
     Indication: Diffuse large B-cell lymphoma stage III
     Dosage: UNK
     Route: 042
     Dates: start: 20240412, end: 20240412
  12. CYCLOPHOSPHAMIDE [Suspect]
     Active Substance: CYCLOPHOSPHAMIDE
     Indication: Richter^s syndrome
     Dosage: 750 MILLIGRAM/SQ.METER, C1D1, AS A PART OF R-CHOP REGIMEN ON 3-WEEK CYCLE (21 DAYS) (DAY 1), ONGOING
     Route: 042
     Dates: start: 20240430
  13. PREDNISONE [Suspect]
     Active Substance: PREDNISONE
     Indication: Diffuse large B-cell lymphoma stage III
     Dosage: 100 MG, QD, C1D1
     Route: 050
     Dates: start: 20240430, end: 20240506
  14. PREDNISONE [Suspect]
     Active Substance: PREDNISONE
     Indication: Richter^s syndrome
  15. VINCRISTINE [Suspect]
     Active Substance: VINCRISTINE
     Indication: Richter^s syndrome
     Dosage: 1.4 MILLIGRAM/SQ.METER, C1D1
     Route: 042
     Dates: start: 20240430
  16. VINCRISTINE [Suspect]
     Active Substance: VINCRISTINE
     Indication: Diffuse large B-cell lymphoma stage III
  17. VINCRISTINE [Concomitant]
     Active Substance: VINCRISTINE
     Dosage: UNK
     Route: 065
     Dates: start: 20240409, end: 20240409
  18. CHLORPHENIRAMINE MALEATE [Concomitant]
     Active Substance: CHLORPHENIRAMINE MALEATE
     Indication: Premedication
     Dosage: 10 MG
     Route: 042
     Dates: start: 20240517, end: 20240517
  19. CHLORPHENIRAMINE MALEATE [Concomitant]
     Active Substance: CHLORPHENIRAMINE MALEATE
     Dosage: 10 MG
     Route: 050
     Dates: start: 20240502, end: 20240502
  20. CHLORPHENIRAMINE MALEATE [Concomitant]
     Active Substance: CHLORPHENIRAMINE MALEATE
     Dosage: UNK
     Route: 065
     Dates: start: 20240415, end: 20240430
  21. CHLORPHENIRAMINE MALEATE [Concomitant]
     Active Substance: CHLORPHENIRAMINE MALEATE
     Dosage: 10 MG
     Route: 042
     Dates: start: 20240510, end: 20240510
  22. CHLORPHENIRAMINE MALEATE [Concomitant]
     Active Substance: CHLORPHENIRAMINE MALEATE
     Dosage: 10 MG
     Route: 042
     Dates: start: 20240430, end: 20240430
  23. DEXAMETHASONE [Concomitant]
     Active Substance: DEXAMETHASONE
     Dosage: 8 MG, BID
     Route: 050
     Dates: start: 20240509, end: 20240519
  24. DEXAMETHASONE [Concomitant]
     Active Substance: DEXAMETHASONE
     Dosage: UNK
     Route: 065
     Dates: start: 20240409, end: 20240430
  25. HYDROCORTISONE [Concomitant]
     Active Substance: HYDROCORTISONE
     Indication: Diffuse large B-cell lymphoma stage III
     Dosage: 100 MILLIGRAM, SINGLE
     Route: 050
     Dates: start: 20240430, end: 20240430
  26. NALOXONE HYDROCHLORIDE\OXYCODONE HYDROCHLORIDE [Concomitant]
     Active Substance: NALOXONE HYDROCHLORIDE\OXYCODONE HYDROCHLORIDE
     Dosage: UNK
     Route: 065
     Dates: start: 20240402, end: 20240419
  27. ZANUBRUTINIB [Concomitant]
     Active Substance: ZANUBRUTINIB
     Dosage: UNK, ONGOING
     Route: 065
     Dates: start: 20240402, end: 20240516
  28. URSODIOL [Concomitant]
     Active Substance: URSODIOL
     Dosage: UNK
     Route: 065
     Dates: start: 20240402, end: 20240418
  29. ALLOPURINOL [Concomitant]
     Active Substance: ALLOPURINOL
     Dosage: UNK
     Route: 065
     Dates: start: 20240402, end: 20240515
  30. ACYCLOVIR [Concomitant]
     Active Substance: ACYCLOVIR
     Dosage: UNK, ONGOING
     Route: 065
     Dates: start: 20240402
  31. ENOXAPARIN [Concomitant]
     Active Substance: ENOXAPARIN
     Dosage: UNK, ONGOING
     Route: 065
     Dates: start: 20240402
  32. BACTRIM [Concomitant]
     Active Substance: SULFAMETHOXAZOLE\TRIMETHOPRIM
     Dosage: UNK, ONGOING
     Route: 065
     Dates: start: 20240403
  33. FOLIC ACID [Concomitant]
     Active Substance: FOLIC ACID
     Dosage: UNK, ONGOING
     Route: 065
     Dates: start: 20240406
  34. MORPHINE HYDROCHLORIDE [Concomitant]
     Active Substance: MORPHINE HYDROCHLORIDE
     Dosage: UNK
     Route: 065
     Dates: start: 20240408, end: 20240520
  35. PANTOPRAZOLE [Concomitant]
     Active Substance: PANTOPRAZOLE
     Dosage: UNK, ONGOING
     Route: 065
     Dates: start: 20240408
  36. FENTANYL [Concomitant]
     Active Substance: FENTANYL
     Dosage: UNK, ONGOING
     Route: 065
     Dates: start: 20240409
  37. FENTANYL [Concomitant]
     Active Substance: FENTANYL
     Dosage: UNK, ONGOING
     Route: 065
     Dates: start: 20240515, end: 20240515
  38. FLUCONAZOLE [Concomitant]
     Active Substance: FLUCONAZOLE
     Dosage: UNK
     Route: 065
     Dates: start: 20240415, end: 20240415
  39. NALDEMEDINE [Concomitant]
     Active Substance: NALDEMEDINE
     Dosage: UNK, ONGOING
     Route: 065
     Dates: start: 20240409, end: 20240419
  40. SENNOSIDES [Concomitant]
     Active Substance: SENNOSIDES
     Dosage: UNK
     Route: 065
     Dates: start: 20240409, end: 20240418
  41. LYRICA [Concomitant]
     Active Substance: PREGABALIN
     Dosage: UNK, ONGOING
     Route: 065
     Dates: start: 20240410
  42. KETOROLAC TROMETHAMINE [Concomitant]
     Active Substance: KETOROLAC TROMETHAMINE
     Dosage: UNK
     Route: 065
     Dates: start: 20240411, end: 20240414
  43. RASBURICASE [Concomitant]
     Active Substance: RASBURICASE
     Dosage: UNK
     Route: 065
     Dates: start: 20240412, end: 20240519
  44. LEVOFLOXACIN [Concomitant]
     Active Substance: LEVOFLOXACIN
     Dosage: UNK
     Route: 065
     Dates: start: 20240506, end: 20240513
  45. PALONOSETRON [Concomitant]
     Active Substance: PALONOSETRON
     Dosage: UNK
     Route: 065
     Dates: start: 20240412, end: 20240430
  46. FILGRASTIM [Concomitant]
     Active Substance: FILGRASTIM
     Dosage: UNK
     Route: 065
     Dates: start: 20240424, end: 20240426
  47. NALDEMEDINE TOSYLATE [Concomitant]
     Active Substance: NALDEMEDINE TOSYLATE
     Dosage: UNK, ONGOING
     Route: 065
     Dates: start: 20240424
  48. PREDNISONE [Concomitant]
     Active Substance: PREDNISONE
     Dosage: UNK
     Route: 050
     Dates: start: 20240430, end: 20240504
  49. NALOXONE HYDROCHLORIDE\OXYCODONE HYDROCHLORIDE [Concomitant]
     Active Substance: NALOXONE HYDROCHLORIDE\OXYCODONE HYDROCHLORIDE
     Dosage: UNK, ONGOING
     Route: 065
     Dates: start: 20240424
  50. ERYTHROPOIETIN [Concomitant]
     Active Substance: ERYTHROPOIETIN
     Dosage: UNK, ONGOING
     Route: 065
     Dates: start: 20240507
  51. ACETAMINOPHEN [Concomitant]
     Active Substance: ACETAMINOPHEN
     Indication: Premedication
     Dosage: 1000 MG
     Route: 050
     Dates: start: 20240502, end: 20240517
  52. ACETAMINOPHEN [Concomitant]
     Active Substance: ACETAMINOPHEN
     Dosage: 1 G
     Route: 048
     Dates: start: 20240517, end: 20240517
  53. ACETAMINOPHEN [Concomitant]
     Active Substance: ACETAMINOPHEN
     Dosage: UNK
     Route: 065
     Dates: start: 20240402
  54. ACETAMINOPHEN [Concomitant]
     Active Substance: ACETAMINOPHEN
     Dosage: 1000 MG
     Route: 048
     Dates: start: 20240430, end: 20240430
  55. ACETAMINOPHEN [Concomitant]
     Active Substance: ACETAMINOPHEN
     Dosage: 1000 MG
     Route: 048
     Dates: start: 20240510, end: 20240510
  56. DEXAMETHASONE PHOSPHATE [Concomitant]
     Active Substance: DEXAMETHASONE PHOSPHATE
     Dosage: 16 MG, ONCE
     Route: 042
     Dates: start: 20240502, end: 20240519
  57. RABEPRAZOLE [Concomitant]
     Active Substance: RABEPRAZOLE
     Dosage: UNK
     Route: 065
     Dates: start: 20240510, end: 20240519
  58. FUROSEMIDE [Concomitant]
     Active Substance: FUROSEMIDE
     Dosage: UNK
     Route: 065
     Dates: start: 20240510, end: 20240511
  59. CANRENOATE POTASSIUM [Concomitant]
     Active Substance: CANRENOATE POTASSIUM
     Dosage: UNK
     Route: 065
     Dates: start: 20240510, end: 20240511
  60. LEVOSULPIRIDE [Concomitant]
     Active Substance: LEVOSULPIRIDE
     Dosage: UNK
     Route: 065
     Dates: start: 20240514, end: 20240519
  61. GLUCOSE;POTASSIUM CHLORIDE [Concomitant]
     Dosage: UNK
     Route: 065
     Dates: start: 20240514, end: 20240518
  62. MOVICOL [Concomitant]
     Active Substance: POLYETHYLENE GLYCOL 3350\POTASSIUM CHLORIDE\SODIUM BICARBONATE\SODIUM CHLORIDE
     Dosage: UNK
     Route: 065
     Dates: start: 20240402, end: 20240419
  63. MOVICOL [Concomitant]
     Active Substance: POLYETHYLENE GLYCOL 3350\POTASSIUM CHLORIDE\SODIUM BICARBONATE\SODIUM CHLORIDE
     Dates: start: 20240402
  64. FLAVOXATE;PROPYPHENAZONE [Concomitant]
     Dosage: UNK, ONGOING
     Route: 065
     Dates: start: 20240516
  65. TAMSULOSIN HYDROCHLORIDE [Concomitant]
     Active Substance: TAMSULOSIN HYDROCHLORIDE
     Dosage: UNK, ONGOING
     Route: 065
     Dates: start: 20240516
  66. FENTANYL CITRATE [Concomitant]
     Active Substance: FENTANYL CITRATE
     Dates: start: 20240411
  67. TRAMADOL [Concomitant]
     Active Substance: TRAMADOL
     Dosage: UNK
     Route: 065
     Dates: start: 20240519, end: 20240519
  68. ONDANSETRON [Concomitant]
     Active Substance: ONDANSETRON
     Dosage: UNK
     Route: 065
     Dates: start: 20240519, end: 20240519
  69. NEOSTIGMINE METHYLSULFATE [Concomitant]
     Active Substance: NEOSTIGMINE METHYLSULFATE
     Dosage: UNK
     Route: 065
     Dates: start: 20240519, end: 20240519
  70. DELORAZEPAM [Concomitant]
     Active Substance: DELORAZEPAM
     Dosage: UNK
     Route: 065
     Dates: start: 20240519, end: 20240519
  71. DEXMEDETOMIDINE HYDROCHLORIDE [Concomitant]
     Active Substance: DEXMEDETOMIDINE HYDROCHLORIDE
     Dosage: UNK
     Route: 065
     Dates: start: 20240520, end: 20240520
  72. TALOFEN [Concomitant]
     Active Substance: PROMAZINE HYDROCHLORIDE
     Dosage: UNK
     Route: 065
     Dates: start: 20240520, end: 20240520
  73. AMINO ACIDS\DEXTROSE\ELECTROLYTES NOS\SOYBEAN OIL [Concomitant]
     Active Substance: AMINO ACIDS\DEXTROSE\ELECTROLYTES NOS\SOYBEAN OIL
     Dosage: UNK
     Route: 065
     Dates: start: 20240513, end: 20240518
  74. CYTARABINE [Concomitant]
     Active Substance: CYTARABINE
     Dosage: UNK
     Route: 065
     Dates: start: 20240519, end: 20240519
  75. NALOXONE HYDROCHLORIDE\OXYCODONE HYDROCHLORIDE [Concomitant]
     Active Substance: NALOXONE HYDROCHLORIDE\OXYCODONE HYDROCHLORIDE
     Dates: start: 20240402, end: 20240419
  76. LASIX [Concomitant]
     Active Substance: FUROSEMIDE
     Dosage: UNK
     Route: 065
     Dates: start: 20240429, end: 20240429
  77. LASIX [Concomitant]
     Active Substance: FUROSEMIDE
     Dates: start: 20240429

REACTIONS (6)
  - Renal ischaemia [Not Recovered/Not Resolved]
  - Disease progression [Fatal]
  - Febrile neutropenia [Recovered/Resolved]
  - Abdominal mass [Unknown]
  - Anaemia [Unknown]
  - Sinus tachycardia [Unknown]

NARRATIVE: CASE EVENT DATE: 20240509
